FAERS Safety Report 5904998-1 (Version None)
Quarter: 2008Q4

REPORT INFORMATION
  Report Type: 
  Country: None (occurrence: None)
  Receive Date: 20081001
  Receipt Date: 20080923
  Transmission Date: 20090506
  Serious: Yes (Death, Hospitalization)
  Sender: FDA-Public Use
  Company Number: DE-ROCHE-585771

PATIENT
  Sex: Female
  Weight: 60 kg

DRUGS (17)
  1. CAPECITABINE [Suspect]
     Indication: GASTRIC CANCER
     Dosage: FREQUENCY: D1-14 Q3W, ROUTE: BID PO.
     Route: 048
     Dates: start: 20080805
  2. BLINDED BEVACIZUMAB [Suspect]
     Indication: GASTRIC CANCER
     Dosage: FORM: INFUSION.
     Route: 042
     Dates: start: 20080805
  3. CISPLATIN [Suspect]
     Indication: GASTRIC CANCER
     Dosage: FREQUENCY: D1Q3W, FORM: INFUSION.
     Route: 042
     Dates: start: 20080805
  4. LISINOPRIL [Concomitant]
  5. METOPROLOL TARTRATE [Concomitant]
  6. NITRENDIPINE [Concomitant]
  7. CREON [Concomitant]
     Dosage: UNIT: IE.
  8. PANTOPRAZOL [Concomitant]
     Dates: start: 20080912, end: 20080915
  9. GRANISETRON [Concomitant]
     Dates: start: 20080910, end: 20080912
  10. METOCLOPRAMIDE [Concomitant]
     Dosage: TDD REPORTED AS USED.
     Dates: start: 20080910, end: 20080915
  11. STEROFUNDIN [Concomitant]
     Dates: start: 20080910, end: 20080916
  12. GENERIC UNKNOWN [Concomitant]
     Dosage: REPORTED AS PARENTERAL NUTRITION.
     Dates: start: 20080910, end: 20080915
  13. OPII [Concomitant]
     Dosage: REPORTED AS TINCTURA OPII.
     Dates: start: 20080912, end: 20080912
  14. PHYTOMENADION [Concomitant]
     Dates: start: 20080911, end: 20080913
  15. NEUPOGEN 48 [Concomitant]
     Dosage: TDD REPORTED AS 1.
     Dates: start: 20080911, end: 20080915
  16. DALTEPARIN NATRIUM [Concomitant]
     Dosage: TDD REPORTED AS NEEDED.
     Dates: start: 20080912, end: 20080915
  17. PREDNISOLONE [Concomitant]
     Dates: start: 20080913, end: 20080914

REACTIONS (2)
  - GENERAL PHYSICAL HEALTH DETERIORATION [None]
  - HEPATIC ARTERY THROMBOSIS [None]
